FAERS Safety Report 14357194 (Version 2)
Quarter: 2018Q1

REPORT INFORMATION
  Report Type: Report from Study
  Country: CA (occurrence: CA)
  Receive Date: 20180105
  Receipt Date: 20180323
  Transmission Date: 20180509
  Serious: Yes (Death)
  Sender: FDA-Public Use
  Company Number: CA-HLSUS-2018-CA-000001

PATIENT
  Age: 73 Year
  Sex: Male

DRUGS (16)
  1. LORAZEPAM. [Concomitant]
     Active Substance: LORAZEPAM
     Dosage: 1 MG CAPSULE TWICE DAILY
     Route: 048
  2. DEXLANSOPRAZOLE [Concomitant]
     Active Substance: DEXLANSOPRAZOLE
     Dosage: 30 MG CAPSULE ONE DAILY
     Route: 048
  3. FERROUS SULFATE. [Concomitant]
     Active Substance: FERROUS SULFATE
     Dosage: 10ML=300 MG AT MID DAY
     Route: 048
  4. CLONIDINE. [Concomitant]
     Active Substance: CLONIDINE
     Dosage: HALF TAB=0.05MG TWICE DAILY
     Route: 048
  5. QUETIAPINE. [Concomitant]
     Active Substance: QUETIAPINE
     Dosage: 12.5 MG CAPSULE TWICE DAILY AS NEEDED
     Route: 048
  6. CLOZARIL [Suspect]
     Active Substance: CLOZAPINE
     Indication: SCHIZOPHRENIA
     Dosage: 25MG IN THE MORNING, 25 MG IN NOON AND 62.5 MG AT BEDTIME
     Route: 048
     Dates: start: 20110214, end: 20171229
  7. LEVOTHYROXINE. [Concomitant]
     Active Substance: LEVOTHYROXINE
     Dosage: 75 MG CAPSULE ONE DAILY
     Route: 048
  8. MOXIFLOXACIN. [Concomitant]
     Active Substance: MOXIFLOXACIN
     Dosage: 400MG DAILY
     Route: 048
  9. SALBUTAMOL [Concomitant]
     Active Substance: ALBUTEROL
     Dosage: 2 INHALATIONS=200MCG ORALLY 4 TIMES DAILY
  10. VALPROIC ACID. [Concomitant]
     Active Substance: VALPROIC ACID
     Dosage: 10ML=500MG THRICE DAILY
     Route: 048
  11. LACTULOSE. [Concomitant]
     Active Substance: LACTULOSE
     Dosage: 45 ML TWICE DAILY
     Route: 048
  12. SENNOSIDES. [Concomitant]
     Active Substance: SENNOSIDES
     Dosage: 12 MG CAPSULE TWICE DAILY
     Route: 048
  13. CLAVULIN [Concomitant]
     Active Substance: AMOXICILLIN\CLAVULANIC ACID
     Dosage: 875 MG TWICE DAILY FOR 10 DAYS
     Route: 048
  14. SCOPOLAMINE [Concomitant]
     Active Substance: SCOPOLAMINE
     Dosage: 0.2 MG
  15. PROCYCLIDINE [Concomitant]
     Active Substance: PROCYCLIDINE
     Dosage: HALF TAB=2.5MG THRICE DAILY
     Route: 048
  16. SERTRALINE [Concomitant]
     Active Substance: SERTRALINE HYDROCHLORIDE

REACTIONS (2)
  - Pneumonia [Fatal]
  - Dysphagia [Unknown]

NARRATIVE: CASE EVENT DATE: 20171225
